FAERS Safety Report 9692157 (Version 2)
Quarter: 2013Q4

REPORT INFORMATION
  Report Type: Spontaneous
  Country: JP (occurrence: JP)
  Receive Date: 20131118
  Receipt Date: 20131211
  Transmission Date: 20140711
  Serious: Yes (Hospitalization)
  Sender: FDA-Public Use
  Company Number: JP-ROCHE-1304879

PATIENT
  Age: 37 Year
  Sex: Male
  Weight: 74 kg

DRUGS (8)
  1. ACTEMRA [Suspect]
     Indication: RHEUMATOID ARTHRITIS
     Route: 041
     Dates: start: 201311, end: 201311
  2. ACTEMRA [Suspect]
     Route: 041
     Dates: start: 20131029, end: 20131029
  3. ACTEMRA [Suspect]
     Indication: RHEUMATOID ARTHRITIS
     Dosage: DOSE INCREASED
     Route: 058
     Dates: start: 20130712, end: 20131015
  4. MUCOSTA [Concomitant]
     Indication: PROPHYLAXIS
     Route: 048
  5. EPADEL [Concomitant]
     Indication: HYPERLIPIDAEMIA
     Route: 048
  6. THIOLA [Concomitant]
     Indication: HEPATIC FUNCTION ABNORMAL
     Route: 048
  7. CONIEL [Concomitant]
     Indication: HYPERTENSION
     Route: 048
  8. LOXONIN [Concomitant]
     Indication: RHEUMATOID ARTHRITIS
     Route: 048

REACTIONS (1)
  - Pancreatitis acute [Recovering/Resolving]
